FAERS Safety Report 8466192-2 (Version None)
Quarter: 2012Q2

REPORT INFORMATION
  Report Type: 
  Country: None (occurrence: None)
  Receive Date: 20120626
  Receipt Date: 20120614
  Transmission Date: 20120825
  Serious: Yes (Hospitalization)
  Sender: FDA-Public Use
  Company Number: US-ELI_LILLY_AND_COMPANY-US201109004176

PATIENT
  Sex: Female

DRUGS (1)
  1. FORTEO [Suspect]
     Indication: OSTEOPOROSIS
     Dosage: UNK, UNKNOWN
     Route: 065

REACTIONS (13)
  - MUSCLE SPASMS [None]
  - NAUSEA [None]
  - ABDOMINAL PAIN UPPER [None]
  - SKIN DISORDER [None]
  - POOR QUALITY SLEEP [None]
  - PNEUMONIA [None]
  - SPINAL CORD DISORDER [None]
  - OEDEMA [None]
  - HEADACHE [None]
  - VOMITING [None]
  - RENAL IMPAIRMENT [None]
  - MALAISE [None]
  - VARICOSE VEIN [None]
